FAERS Safety Report 19075869 (Version 3)
Quarter: 2023Q2

REPORT INFORMATION
  Report Type: Spontaneous
  Country: US (occurrence: US)
  Receive Date: 20210330
  Receipt Date: 20230412
  Transmission Date: 20230722
  Serious: Yes (Hospitalization, Other)
  Sender: FDA-Public Use
  Company Number: US-GILEAD-2021-0523102

PATIENT
  Age: 57 Year
  Sex: Female
  Weight: 68.04 kg

DRUGS (54)
  1. ATRIPLA [Suspect]
     Active Substance: EFAVIRENZ\EMTRICITABINE\TENOFOVIR DISOPROXIL FUMARATE
     Indication: HIV infection
     Dosage: UNK
     Route: 048
     Dates: start: 2001
  2. ATRIPLA [Suspect]
     Active Substance: EFAVIRENZ\EMTRICITABINE\TENOFOVIR DISOPROXIL FUMARATE
     Dosage: UNK
     Route: 048
     Dates: start: 2006, end: 201201
  3. ATRIPLA [Suspect]
     Active Substance: EFAVIRENZ\EMTRICITABINE\TENOFOVIR DISOPROXIL FUMARATE
     Dosage: UNK
     Route: 048
     Dates: start: 20120106, end: 201205
  4. ATRIPLA [Suspect]
     Active Substance: EFAVIRENZ\EMTRICITABINE\TENOFOVIR DISOPROXIL FUMARATE
     Dosage: UNK
     Route: 048
     Dates: start: 20120503, end: 201210
  5. ATRIPLA [Suspect]
     Active Substance: EFAVIRENZ\EMTRICITABINE\TENOFOVIR DISOPROXIL FUMARATE
     Dosage: UNK
     Route: 048
     Dates: start: 20121101, end: 201304
  6. ATRIPLA [Suspect]
     Active Substance: EFAVIRENZ\EMTRICITABINE\TENOFOVIR DISOPROXIL FUMARATE
     Dosage: UNK
     Route: 048
     Dates: start: 20130501, end: 20140125
  7. ATRIPLA [Suspect]
     Active Substance: EFAVIRENZ\EMTRICITABINE\TENOFOVIR DISOPROXIL FUMARATE
     Dosage: UNK
     Route: 048
     Dates: start: 20140127, end: 201407
  8. ATRIPLA [Suspect]
     Active Substance: EFAVIRENZ\EMTRICITABINE\TENOFOVIR DISOPROXIL FUMARATE
     Dosage: UNK
     Route: 048
     Dates: start: 20140725, end: 20150115
  9. ATRIPLA [Suspect]
     Active Substance: EFAVIRENZ\EMTRICITABINE\TENOFOVIR DISOPROXIL FUMARATE
     Dosage: UNK
     Route: 048
     Dates: start: 20150122, end: 201507
  10. ATRIPLA [Suspect]
     Active Substance: EFAVIRENZ\EMTRICITABINE\TENOFOVIR DISOPROXIL FUMARATE
     Dosage: UNK
     Route: 048
     Dates: start: 20150716, end: 201512
  11. ATRIPLA [Suspect]
     Active Substance: EFAVIRENZ\EMTRICITABINE\TENOFOVIR DISOPROXIL FUMARATE
     Dosage: UNK
     Route: 048
     Dates: start: 20151217, end: 201606
  12. ATRIPLA [Suspect]
     Active Substance: EFAVIRENZ\EMTRICITABINE\TENOFOVIR DISOPROXIL FUMARATE
     Dosage: UNK
     Route: 048
     Dates: start: 20160617, end: 20161022
  13. VIREAD [Suspect]
     Active Substance: TENOFOVIR DISOPROXIL FUMARATE
     Indication: HIV infection
     Dosage: UNK
     Route: 048
     Dates: start: 2001
  14. VIREAD [Suspect]
     Active Substance: TENOFOVIR DISOPROXIL FUMARATE
     Dosage: UNK
     Route: 048
     Dates: start: 2001, end: 2004
  15. VIREAD [Suspect]
     Active Substance: TENOFOVIR DISOPROXIL FUMARATE
     Dosage: UNK
     Route: 048
     Dates: start: 2005, end: 200508
  16. TRUVADA [Suspect]
     Active Substance: EMTRICITABINE\TENOFOVIR DISOPROXIL FUMARATE
     Indication: HIV infection
     Dosage: UNK
     Route: 048
     Dates: start: 2001
  17. TRUVADA [Suspect]
     Active Substance: EMTRICITABINE\TENOFOVIR DISOPROXIL FUMARATE
     Dosage: UNK
     Route: 048
     Dates: start: 2004, end: 2006
  18. TRUVADA [Suspect]
     Active Substance: EMTRICITABINE\TENOFOVIR DISOPROXIL FUMARATE
     Dosage: UNK
     Route: 048
     Dates: start: 200508, end: 2006
  19. BIKTARVY [Concomitant]
     Active Substance: BICTEGRAVIR SODIUM\EMTRICITABINE\TENOFOVIR ALAFENAMIDE FUMARATE
  20. GENVOYA [Concomitant]
     Active Substance: COBICISTAT\ELVITEGRAVIR\EMTRICITABINE\TENOFOVIR ALAFENAMIDE FUMARATE
  21. ACYCLOVIR [Concomitant]
     Active Substance: ACYCLOVIR
  22. AMOXICILLIN [Concomitant]
     Active Substance: AMOXICILLIN
  23. ASPIRIN [Concomitant]
     Active Substance: ASPIRIN
  24. ATOVAQUONE [Concomitant]
     Active Substance: ATOVAQUONE
  25. BENZONATATE [Concomitant]
     Active Substance: BENZONATATE
  26. CALCIUM CARBONATE\CHOLECALCIFEROL [Concomitant]
     Active Substance: CALCIUM CARBONATE\CHOLECALCIFEROL
  27. CHLORTHALIDONE [Concomitant]
     Active Substance: CHLORTHALIDONE
  28. DOXYCYCLINE [Concomitant]
     Active Substance: DOXYCYCLINE
  29. ERGOCALCIFEROL [Concomitant]
     Active Substance: ERGOCALCIFEROL
  30. FLUCONAZOLE [Concomitant]
     Active Substance: FLUCONAZOLE
  31. FLUTICASONE [Concomitant]
     Active Substance: FLUTICASONE
  32. GABAPENTIN [Concomitant]
     Active Substance: GABAPENTIN
  33. GOLYTELY [Concomitant]
     Active Substance: POLYETHYLENE GLYCOL 3350\POTASSIUM CHLORIDE\SODIUM BICARBONATE\SODIUM CHLORIDE\SODIUM SULFATE
  34. GUAIFENESIN [Concomitant]
     Active Substance: GUAIFENESIN
  35. HYDROCHLOROTHIAZIDE [Concomitant]
     Active Substance: HYDROCHLOROTHIAZIDE
  36. LISINOPRIL [Concomitant]
     Active Substance: LISINOPRIL
  37. LORATADINE [Concomitant]
     Active Substance: LORATADINE
  38. LOSARTAN [Concomitant]
     Active Substance: LOSARTAN
  39. METFORMIN [Concomitant]
     Active Substance: METFORMIN HYDROCHLORIDE
  40. METOPROLOL [Concomitant]
     Active Substance: METOPROLOL
  41. MICONAZOLE NITRATE [Concomitant]
     Active Substance: MICONAZOLE NITRATE
  42. MOMETASONE [Concomitant]
     Active Substance: MOMETASONE
  43. RANITIDINE [Concomitant]
     Active Substance: RANITIDINE
  44. ROSUVASTATIN [Concomitant]
     Active Substance: ROSUVASTATIN
  45. TRIAMCINOLONE [Concomitant]
     Active Substance: TRIAMCINOLONE
  46. VALACYCLOVIR HYDROCHLORIDE [Concomitant]
     Active Substance: VALACYCLOVIR HYDROCHLORIDE
  47. CRIXIVAN [Concomitant]
     Active Substance: INDINAVIR SULFATE
  48. KALETRA [Concomitant]
     Active Substance: LOPINAVIR\RITONAVIR
  49. NORVIR [Concomitant]
     Active Substance: RITONAVIR
  50. SUSTIVA [Concomitant]
     Active Substance: EFAVIRENZ
  51. VIRAMUNE [Concomitant]
     Active Substance: NEVIRAPINE
  52. ZERIT [Concomitant]
     Active Substance: STAVUDINE
  53. VITAMINS NOS [Concomitant]
     Active Substance: VITAMINS
  54. DOXYCYCLINE [Concomitant]
     Active Substance: DOXYCYCLINE

REACTIONS (12)
  - Multiple fractures [Unknown]
  - Osteoporosis [Not Recovered/Not Resolved]
  - Skeletal injury [Unknown]
  - Emotional distress [Not Recovered/Not Resolved]
  - Anhedonia [Not Recovered/Not Resolved]
  - Anxiety [Not Recovered/Not Resolved]
  - Pain [Not Recovered/Not Resolved]
  - Back pain [Unknown]
  - Joint range of motion decreased [Unknown]
  - Osteopenia [Not Recovered/Not Resolved]
  - Joint swelling [Unknown]
  - Gait disturbance [Unknown]

NARRATIVE: CASE EVENT DATE: 20070801
